FAERS Safety Report 4340809-6 (Version None)
Quarter: 2004Q2

REPORT INFORMATION
  Report Type: 
  Country: None (occurrence: None)
  Receive Date: 20040419
  Receipt Date: 20030318
  Transmission Date: 20050107
  Serious: No
  Sender: FDA-Public Use
  Company Number: US-GLAXOSMITHKLINE-A0400779A

PATIENT
  Age: 10 Year
  Sex: Male

DRUGS (3)
  1. ESKALITH [Suspect]
     Indication: BIPOLAR DISORDER
     Dosage: 450MG TWICE PER DAY
     Route: 048
  2. DIURETIC [Concomitant]
     Route: 065
  3. AMILORIDE [Concomitant]
     Route: 065

REACTIONS (1)
  - DRUG LEVEL BELOW THERAPEUTIC [None]
